FAERS Safety Report 5079259-6 (Version None)
Quarter: 2006Q3

REPORT INFORMATION
  Report Type: 
  Country: None (occurrence: None)
  Receive Date: 20060720
  Receipt Date: 20050630
  Transmission Date: 20061208
  Serious: Yes (Other)
  Sender: FDA-Public Use
  Company Number: 2005088130

PATIENT
  Age: 75 Year
  Sex: Female
  Weight: 72.5755 kg

DRUGS (11)
  1. CELEBREX [Suspect]
     Indication: OSTEOARTHRITIS
     Dosage: 400 MG (200 MG, 2 IN 1 D), ORAL
     Route: 048
  2. CELEBREX [Suspect]
     Indication: PAIN
     Dosage: 400 MG (200 MG, 2 IN 1 D), ORAL
     Route: 048
  3. CELEBREX [Suspect]
     Indication: SPONDYLITIS
     Dosage: 400 MG (200 MG, 2 IN 1 D), ORAL
     Route: 048
  4. CELEBREX [Suspect]
     Indication: SURGERY
     Dosage: 400 MG (200 MG, 2 IN 1 D), ORAL
     Route: 048
  5. VICODIN (HYDROCODONE BITARTATE, PARACETAMOL) [Concomitant]
  6. AVALIDE [Concomitant]
  7. SYNTHROID [Concomitant]
  8. OXYCODONE (OXYCODONE) [Concomitant]
  9. ACTONEL [Concomitant]
  10. ZOLOFT [Concomitant]
  11. HYDROCODONE (HYDROCODONE) [Concomitant]

REACTIONS (1)
  - MYOCARDIAL INFARCTION [None]
